FAERS Safety Report 19472496 (Version 5)
Quarter: 2024Q1

REPORT INFORMATION
  Report Type: Spontaneous
  Country: US (occurrence: US)
  Receive Date: 20210629
  Receipt Date: 20240207
  Transmission Date: 20240409
  Serious: Yes (Other)
  Sender: FDA-Public Use
  Company Number: US-JNJFOC-20210647393

PATIENT
  Age: 40 Year
  Sex: Female

DRUGS (20)
  1. ELMIRON [Suspect]
     Active Substance: PENTOSAN POLYSULFATE SODIUM
     Indication: Cystitis interstitial
     Route: 048
     Dates: start: 2002
  2. ELMIRON [Suspect]
     Active Substance: PENTOSAN POLYSULFATE SODIUM
     Route: 048
     Dates: start: 20040101, end: 20061101
  3. ELMIRON [Suspect]
     Active Substance: PENTOSAN POLYSULFATE SODIUM
     Route: 048
     Dates: start: 20061102, end: 20150601
  4. ELMIRON [Suspect]
     Active Substance: PENTOSAN POLYSULFATE SODIUM
     Dosage: 1-2 TIMES P/DAY
     Route: 048
     Dates: start: 20150602, end: 20200901
  5. ELMIRON [Suspect]
     Active Substance: PENTOSAN POLYSULFATE SODIUM
     Route: 048
     Dates: end: 202009
  6. ELMIRON [Suspect]
     Active Substance: PENTOSAN POLYSULFATE SODIUM
     Route: 048
     Dates: end: 202011
  7. OXYBUTYNIN [Concomitant]
     Active Substance: OXYBUTYNIN\OXYBUTYNIN CHLORIDE
     Indication: Cystitis interstitial
     Route: 065
     Dates: start: 20200901
  8. OXYBUTYNIN [Concomitant]
     Active Substance: OXYBUTYNIN\OXYBUTYNIN CHLORIDE
     Indication: Fibromyalgia
  9. METHOTREXATE [Concomitant]
     Active Substance: METHOTREXATE
     Indication: Cystitis interstitial
     Dates: start: 20040101, end: 20061101
  10. PREDNISONE [Concomitant]
     Active Substance: PREDNISONE
     Indication: Cystitis interstitial
     Dates: start: 20040101, end: 20061101
  11. EFFEXOR [Concomitant]
     Active Substance: VENLAFAXINE HYDROCHLORIDE
     Indication: Fibromyalgia
     Dates: start: 20110101
  12. SAVELLA [Concomitant]
     Active Substance: MILNACIPRAN HYDROCHLORIDE
     Indication: Fibromyalgia
     Dates: start: 20150101
  13. ADDERALL [Concomitant]
     Active Substance: AMPHETAMINE ASPARTATE\AMPHETAMINE SULFATE\DEXTROAMPHETAMINE SACCHARATE\DEXTROAMPHETAMINE SULFATE
     Indication: Fibromyalgia
     Dates: start: 20120101
  14. SPIRONOLACTONE [Concomitant]
     Active Substance: SPIRONOLACTONE
     Indication: Acne
     Dates: start: 20200901
  15. AMLODIPINE [Concomitant]
     Active Substance: AMLODIPINE BESYLATE
     Indication: Hypertension
     Dates: start: 20200901
  16. MELATONIN [Concomitant]
     Active Substance: MELATONIN
     Indication: Sleep disorder
     Dates: start: 20200901
  17. MELOXICAM [Concomitant]
     Active Substance: MELOXICAM
     Indication: Fibromyalgia
     Dates: start: 20200901
  18. MELOXICAM [Concomitant]
     Active Substance: MELOXICAM
     Indication: Neuralgia
     Dates: start: 20200401
  19. CLARITIN [Concomitant]
     Active Substance: LORATADINE
     Indication: Multiple allergies
     Dates: start: 20170101
  20. LEVOXYL [Concomitant]
     Active Substance: LEVOTHYROXINE SODIUM
     Indication: Thyroid disorder
     Dates: start: 20100101

REACTIONS (3)
  - Macular degeneration [Unknown]
  - Maculopathy [Unknown]
  - Off label use [Unknown]

NARRATIVE: CASE EVENT DATE: 20150602
